FAERS Safety Report 8260091-7 (Version None)
Quarter: 2012Q2

REPORT INFORMATION
  Report Type: 
  Country: None (occurrence: None)
  Receive Date: 20120404
  Receipt Date: 20120402
  Transmission Date: 20120825
  Serious: Yes (Congenital Anomaly)
  Sender: FDA-Public Use
  Company Number: DE-PFIZER INC-2012083453

PATIENT
  Sex: Male
  Weight: 3.11 kg

DRUGS (2)
  1. FOLIC ACID [Concomitant]
     Indication: PROPHYLAXIS OF NEURAL TUBE DEFECT
     Dosage: 0.4 MG / D
     Route: 064
     Dates: start: 20101225, end: 20110520
  2. CYKLOKAPRON [Suspect]
     Indication: HAEMORRHAGE IN PREGNANCY
     Dosage: FROM 27FEB2011 1500 MG/D
     Route: 064
     Dates: start: 20110225, end: 20110301

REACTIONS (6)
  - UMBILICAL HERNIA [None]
  - EXTERNAL AUDITORY CANAL ATRESIA [None]
  - LOW SET EARS [None]
  - FACIAL ASYMMETRY [None]
  - MATERNAL EXPOSURE TIMING UNSPECIFIED [None]
  - ENCEPHALOCELE [None]
